FAERS Safety Report 10952011 (Version 3)
Quarter: 2016Q2

REPORT INFORMATION
  Report Type: Report from Study
  Country: BR (occurrence: BR)
  Receive Date: 20150325
  Receipt Date: 20160524
  Transmission Date: 20160815
  Serious: Yes (Hospitalization, Other)
  Sender: FDA-Public Use
  Company Number: BR-ROCHE-1400690

PATIENT
  Age: 46 Year
  Sex: Female
  Weight: 57 kg

DRUGS (36)
  1. CLOPIDOGREL BISULFATE. [Concomitant]
     Active Substance: CLOPIDOGREL BISULFATE
     Route: 065
  2. PRELONE [Concomitant]
     Active Substance: PREDNISOLONE
     Dosage: ALTERNATE DAYS
     Route: 048
  3. SYNTHROID [Concomitant]
     Active Substance: LEVOTHYROXINE SODIUM
     Route: 065
  4. CONCOR [Concomitant]
     Active Substance: BISOPROLOL FUMARATE
     Route: 065
  5. ASPIRIN. [Concomitant]
     Active Substance: ASPIRIN
     Route: 065
  6. AZATHIOPRINE. [Concomitant]
     Active Substance: AZATHIOPRINE
  7. EZETROL [Concomitant]
     Active Substance: EZETIMIBE
     Indication: BLOOD CHOLESTEROL ABNORMAL
     Route: 065
  8. MABTHERA [Suspect]
     Active Substance: RITUXIMAB
     Route: 042
     Dates: start: 20130201
  9. MABTHERA [Suspect]
     Active Substance: RITUXIMAB
     Route: 042
     Dates: start: 201405
  10. PARIET [Concomitant]
     Active Substance: RABEPRAZOLE SODIUM
     Route: 065
  11. AZATHIOPRINE. [Concomitant]
     Active Substance: AZATHIOPRINE
     Route: 065
  12. PRISTIQ EXTENDED-RELEASE [Concomitant]
     Active Substance: DESVENLAFAXINE SUCCINATE
  13. VASTAREL [Concomitant]
     Active Substance: TRIMETAZIDINE DIHYDROCHLORIDE
  14. ATORVASTATIN [Concomitant]
     Active Substance: ATORVASTATIN
     Route: 065
  15. VITAMIN D3 [Concomitant]
     Active Substance: CHOLECALCIFEROL
  16. MABTHERA [Suspect]
     Active Substance: RITUXIMAB
     Route: 042
     Dates: start: 201207
  17. ARADOIS [Concomitant]
     Active Substance: LOSARTAN POTASSIUM
     Route: 065
  18. VYTORIN [Concomitant]
     Active Substance: EZETIMIBE\SIMVASTATIN
     Dosage: 10/40
     Route: 065
  19. RIVOTRIL [Concomitant]
     Active Substance: CLONAZEPAM
     Route: 065
  20. DIPYRONE [Concomitant]
     Active Substance: DIPYRONE
     Indication: PAIN
  21. EZETROL [Concomitant]
     Active Substance: EZETIMIBE
     Indication: BLOOD TRIGLYCERIDES ABNORMAL
  22. TRAYENTA DUO [Concomitant]
     Active Substance: LINAGLIPTIN\METFORMIN HYDROCHLORIDE
     Route: 065
  23. PRELONE [Concomitant]
     Active Substance: PREDNISOLONE
  24. MABTHERA [Suspect]
     Active Substance: RITUXIMAB
     Indication: RHEUMATOID ARTHRITIS
     Dosage: DATE OF LATEST RITUXIMAB INFUSION: 16/FEB/2016
     Route: 042
     Dates: start: 20120103
  25. ARADOIS [Suspect]
     Active Substance: LOSARTAN POTASSIUM
     Indication: PRODUCT USED FOR UNKNOWN INDICATION
     Route: 065
  26. MACRODANTIN [Concomitant]
     Active Substance: NITROFURANTOIN
  27. CIPRO [Suspect]
     Active Substance: CIPROFLOXACIN HYDROCHLORIDE
     Indication: PRODUCT USED FOR UNKNOWN INDICATION
     Route: 065
  28. CORTISONE [Suspect]
     Active Substance: CORTISONE\HYDROCORTISONE
     Indication: PRODUCT USED FOR UNKNOWN INDICATION
     Route: 065
  29. RIVOTRIL [Concomitant]
     Active Substance: CLONAZEPAM
     Route: 065
  30. CLOPINE [Concomitant]
     Active Substance: CLOZAPINE
     Route: 065
  31. SIGMATRIOL [Concomitant]
     Active Substance: CALCITRIOL
     Route: 065
  32. MABTHERA [Suspect]
     Active Substance: RITUXIMAB
     Route: 042
     Dates: start: 201410
  33. CONCOR [Suspect]
     Active Substance: BISOPROLOL FUMARATE
     Indication: PRODUCT USED FOR UNKNOWN INDICATION
     Route: 065
  34. MONTELAIR [Concomitant]
     Active Substance: MONTELUKAST SODIUM
  35. DEPURA [Concomitant]
     Active Substance: CHOLECALCIFEROL
  36. TRAMAL [Concomitant]
     Active Substance: TRAMADOL
     Route: 065

REACTIONS (48)
  - Arterial occlusive disease [Unknown]
  - Blood glucose increased [Not Recovered/Not Resolved]
  - Hypersensitivity [Recovered/Resolved]
  - Immunodeficiency [Not Recovered/Not Resolved]
  - Hepatitis [Unknown]
  - Unevaluable event [Unknown]
  - Blood triglycerides increased [Not Recovered/Not Resolved]
  - Fluid retention [Unknown]
  - Dysbacteriosis [Unknown]
  - Hypotension [Unknown]
  - H1N1 influenza [Unknown]
  - Pain [Not Recovered/Not Resolved]
  - Finger deformity [Not Recovered/Not Resolved]
  - Hypertension [Unknown]
  - Myocardial infarction [Unknown]
  - Gastric haemorrhage [Unknown]
  - Myocardial infarction [Unknown]
  - Dizziness [Unknown]
  - Skin papilloma [Not Recovered/Not Resolved]
  - Weight decreased [Not Recovered/Not Resolved]
  - Muscle tightness [Recovered/Resolved]
  - Laryngeal oedema [Recovered/Resolved]
  - Memory impairment [Not Recovered/Not Resolved]
  - Glucose tolerance impaired [Not Recovered/Not Resolved]
  - Weight decreased [Recovered/Resolved]
  - Cardiac failure congestive [Not Recovered/Not Resolved]
  - Pyelonephritis [Unknown]
  - Asthenia [Unknown]
  - Urinary tract infection [Unknown]
  - Asthenia [Not Recovered/Not Resolved]
  - Influenza [Unknown]
  - Pain [Unknown]
  - Gait disturbance [Not Recovered/Not Resolved]
  - Somnolence [Not Recovered/Not Resolved]
  - Oesophageal candidiasis [Unknown]
  - Movement disorder [Recovered/Resolved]
  - Neck pain [Recovered/Resolved]
  - Mouth injury [Unknown]
  - Hypersensitivity [Unknown]
  - Depression [Unknown]
  - Myalgia [Not Recovered/Not Resolved]
  - Urinary tract infection [Recovered/Resolved]
  - Glaucoma [Not Recovered/Not Resolved]
  - Disturbance in attention [Not Recovered/Not Resolved]
  - Blood cholesterol increased [Not Recovered/Not Resolved]
  - Muscular weakness [Not Recovered/Not Resolved]
  - Dysstasia [Not Recovered/Not Resolved]
  - Fall [Unknown]

NARRATIVE: CASE EVENT DATE: 20120118
